FAERS Safety Report 9733011 (Version 1)
Quarter: 2013Q4

REPORT INFORMATION
  Report Type: Spontaneous
  Country: JP (occurrence: JP)
  Receive Date: 20131205
  Receipt Date: 20131205
  Transmission Date: 20140711
  Serious: Yes (Hospitalization)
  Sender: FDA-Public Use
  Company Number: JP-MERCK-1312JPN000832

PATIENT
  Age: 29 Day
  Sex: Female

DRUGS (1)
  1. DEXAMETHASONE [Suspect]
     Indication: NEONATAL LEUKAEMIA
     Route: 048

REACTIONS (1)
  - Fungaemia [Recovering/Resolving]
